FAERS Safety Report 7378908-7 (Version None)
Quarter: 2011Q1

REPORT INFORMATION
  Report Type: 
  Country: None (occurrence: None)
  Receive Date: 20110328
  Receipt Date: 20110322
  Transmission Date: 20110831
  Serious: Yes (Other)
  Sender: FDA-Public Use
  Company Number: JP-EISAI INC-E2090-01539-SPO-JP

PATIENT

DRUGS (1)
  1. EXCEGRAN [Suspect]
     Dosage: UNKNOWN
     Route: 064
     Dates: end: 20110207

REACTIONS (2)
  - NEONATAL RESPIRATORY FAILURE [None]
  - DRUG EXPOSURE DURING PREGNANCY [None]
